FAERS Safety Report 20920037 (Version 1)
Quarter: 2022Q2

REPORT INFORMATION
  Report Type: Spontaneous
  Country: GB (occurrence: GB)
  Receive Date: 20220606
  Receipt Date: 20220606
  Transmission Date: 20220721
  Serious: Yes (Other)
  Sender: FDA-Public Use
  Company Number: None

PATIENT
  Age: 41 Year
  Sex: Female
  Weight: 63 kg

DRUGS (15)
  1. NAPROXEN [Suspect]
     Active Substance: NAPROXEN
     Indication: Product used for unknown indication
     Dosage: UNK
     Dates: start: 20220527
  2. ALFACALCIDOL [Concomitant]
     Active Substance: ALFACALCIDOL
     Dosage: UNK, QD (TAKE ONE OD ASD BY HOSPITAL )
     Dates: start: 20211207
  3. AMLODIPINE [Concomitant]
     Active Substance: AMLODIPINE BESYLATE
     Dosage: 1 DOSAGE FORM, QD (TAKE ONE TABLET DAILY ASD BY HOSPITAL  )
     Dates: start: 20201009
  4. ASPIRIN [Concomitant]
     Active Substance: ASPIRIN
     Dosage: UNK, QD (TAKE ONE DAILY ASD BY HOSPITAL  )
     Dates: start: 20181120
  5. ENALAPRIL [Concomitant]
     Active Substance: ENALAPRIL
     Dosage: UNK, BID (1 TO BE TAKEN TWICE DAILY ASD BY RENAL CLINIC  )
     Dates: start: 20191112
  6. FOLIC ACID [Concomitant]
     Active Substance: FOLIC ACID
     Dosage: 1 DOSAGE FORM, QD (TAKE ONE TABLET DAILY  )
     Dates: start: 20220408, end: 20220511
  7. FUROSEMIDE [Concomitant]
     Active Substance: FUROSEMIDE
     Dosage: 4 DOSAGE FORM, AM (TAKE 4 TABLETS EACH MORNING ASD BY RENAL  )
     Dates: start: 20210219, end: 20220511
  8. HYDROXYCHLOROQUINE SULFATE [Concomitant]
     Active Substance: HYDROXYCHLOROQUINE SULFATE
     Dosage: UNK, QD (ONE TO BE TAKEN DAILY ASD BY HOSPITAL)
     Dates: start: 20180518
  9. LACTULOSE [Concomitant]
     Active Substance: LACTULOSE
     Dosage: 3X5ML SPOONS DAILY
     Dates: start: 20151020, end: 20220511
  10. POLYETHYLENE GLYCOL 3350\POTASSIUM CHLORIDE\SODIUM BICARBONATE\SODIUM [Concomitant]
     Active Substance: POLYETHYLENE GLYCOL 3350\POTASSIUM CHLORIDE\SODIUM BICARBONATE\SODIUM CHLORIDE
     Dosage: USE 1 TO 3 SACHETS IN DIVIDED DOSES DAILY FOR U...
     Dates: start: 20220310, end: 20220511
  11. LEVETIRACETAM [Concomitant]
     Active Substance: LEVETIRACETAM
     Dosage: 1 DOSAGE FORM, QD (TAKE 1 TABLET DAILY  )
     Dates: start: 20180518
  12. OMEPRAZOLE [Concomitant]
     Active Substance: OMEPRAZOLE
     Dosage: 2 DOSAGE FORM, QD (TAKE 2 TABLETS DAILY  )
     Dates: start: 20180518
  13. ACETAMINOPHEN [Concomitant]
     Active Substance: ACETAMINOPHEN
     Indication: Pain
     Dosage: UNK, QD (TAKE 1 OR 2 4 TIMES/DAY FOR PAIN  )
     Dates: start: 20180906, end: 20220511
  14. PREDNISOLONE [Concomitant]
     Active Substance: PREDNISOLONE
     Dosage: 2 DOSAGE FORM, QD (TAKE 2 TABLETS DAILY ASD BY THE HOSPITAL  )
     Dates: start: 20160202
  15. SENNA [Concomitant]
     Active Substance: SENNA LEAF\SENNOSIDES\SENNOSIDES A AND B
     Dosage: UNK, HS (TAKE 2 AT BEDTIME ASD BY HOSPITAL )
     Dates: start: 20220310

REACTIONS (2)
  - Hypersensitivity [Unknown]
  - Rash [Unknown]

NARRATIVE: CASE EVENT DATE: 20220527
